FAERS Safety Report 8616713-1 (Version None)
Quarter: 2012Q3

REPORT INFORMATION
  Report Type: 
  Country: None (occurrence: None)
  Receive Date: 20120823
  Receipt Date: 20120802
  Transmission Date: 20120928
  Serious: No
  Sender: FDA-Public Use
  Company Number: US-009507513-1208USA001613

PATIENT

DRUGS (2)
  1. COUMADIN [Concomitant]
  2. ZETIA [Suspect]
     Dosage: 10 MG, QD
     Route: 048

REACTIONS (1)
  - INTERNATIONAL NORMALISED RATIO INCREASED [None]
